FAERS Safety Report 4546930-1 (Version None)
Quarter: 2005Q1

REPORT INFORMATION
  Report Type: 
  Country: None (occurrence: None)
  Receive Date: 20050106
  Receipt Date: 20041116
  Transmission Date: 20050727
  Serious: Yes (Death, Hospitalization)
  Sender: FDA-Public Use
  Company Number: US-MERCK-0411USA02872

PATIENT
  Age: 71 Year
  Sex: Male
  Weight: 70 kg

DRUGS (8)
  1. VIOXX [Suspect]
     Indication: PSORIATIC ARTHROPATHY
     Route: 048
     Dates: start: 20030701, end: 20041016
  2. LANOXIN [Concomitant]
     Route: 048
     Dates: start: 20040809
  3. ASPIRIN [Concomitant]
     Route: 048
  4. VIAGRA [Concomitant]
     Route: 048
  5. LIDEX-E [Concomitant]
     Route: 061
  6. DIPROSONE [Concomitant]
     Route: 061
  7. LAMISIL [Concomitant]
     Route: 048
  8. MULTIVITAMIN [Concomitant]
     Route: 048

REACTIONS (4)
  - ATRIAL FIBRILLATION [None]
  - EMBOLIC STROKE [None]
  - OEDEMA PERIPHERAL [None]
  - PAIN IN EXTREMITY [None]
